FAERS Safety Report 21810905 (Version 1)
Quarter: 2022Q4

REPORT INFORMATION
  Report Type: Spontaneous
  Country: US (occurrence: None)
  Receive Date: 20221231
  Receipt Date: 20221231
  Transmission Date: 20230113
  Serious: Yes (Hospitalization)
  Sender: FDA-Public Use
  Company Number: None

PATIENT
  Age: 23 Year
  Sex: Male
  Weight: 72 kg

DRUGS (4)
  1. ABILIFY MAINTENA [Suspect]
     Active Substance: ARIPIPRAZOLE
     Indication: Product used for unknown indication
     Dates: start: 20220729, end: 20220729
  2. MULTI-VITAMIN [Concomitant]
     Active Substance: .ALPHA.-TOCOPHEROL ACETATE, DL-\ASCORBIC ACID\CYANOCOBALAMIN\FLUORIDE ION\FOLIC ACID\NIACIN\PYRIDOXI
  3. FISH OIL [Concomitant]
     Active Substance: FISH OIL
  4. VITAMIN B [Concomitant]
     Active Substance: VITAMIN B

REACTIONS (4)
  - Swelling [None]
  - Heart rate increased [None]
  - Fatigue [None]
  - Hypoaesthesia [None]

NARRATIVE: CASE EVENT DATE: 20220729
